FAERS Safety Report 26075024 (Version 1)
Quarter: 2025Q4

REPORT INFORMATION
  Report Type: Spontaneous
  Country: US (occurrence: US)
  Receive Date: 20251121
  Receipt Date: 20251121
  Transmission Date: 20260119
  Serious: No
  Sender: VERASTEM
  Company Number: US-VERASTEM-250819US-AFCPK-00477

PATIENT

DRUGS (1)
  1. AVMAPKI FAKZYNJA CO-PACK [Suspect]
     Active Substance: AVUTOMETINIB POTASSIUM\DEFACTINIB HYDROCHLORIDE
     Indication: Ovarian cancer
     Dosage: AVMAPKI 0.8MG QID
     Route: 048
     Dates: start: 20250805

REACTIONS (3)
  - Liver disorder [Unknown]
  - Emotional distress [Unknown]
  - Blood alkaline phosphatase increased [Recovering/Resolving]

NARRATIVE: CASE EVENT DATE: 20250811
